FAERS Safety Report 4720467-9 (Version None)
Quarter: 2005Q3

REPORT INFORMATION
  Report Type: 
  Country: None (occurrence: None)
  Receive Date: 20050721
  Receipt Date: 20040713
  Transmission Date: 20060218
  Serious: Yes (Other)
  Sender: FDA-Public Use
  Company Number: US-BRISTOL-MYERS SQUIBB COMPANY-12638979

PATIENT
  Age: 53 Year
  Sex: Male
  Weight: 81 kg

DRUGS (3)
  1. GLUCOVANCE [Suspect]
     Indication: DIABETES MELLITUS
     Route: 048
     Dates: start: 20031201
  2. BENICAR [Concomitant]
  3. ASPIRIN [Concomitant]
     Dosage: UNITS = GR;  DAILY DOSE:  ^QUARTER OF ONE PER DAY^

REACTIONS (1)
  - HYPOGLYCAEMIA [None]
